FAERS Safety Report 8162535-8 (Version None)
Quarter: 2012Q1

REPORT INFORMATION
  Report Type: 
  Country: None (occurrence: None)
  Receive Date: 20120224
  Receipt Date: 20120220
  Transmission Date: 20120608
  Serious: Yes (Death, Life-Threatening)
  Sender: FDA-Public Use
  Company Number: FR-PFIZER INC-2012044214

PATIENT
  Age: 68 Year
  Sex: Female

DRUGS (14)
  1. IDARUBICIN HCL [Suspect]
     Indication: ACUTE LEUKAEMIA
     Dosage: UNK
     Dates: start: 20111228
  2. CYTARABINE [Suspect]
     Indication: ACUTE LEUKAEMIA
     Dosage: UNK
     Dates: start: 20111228
  3. PIPERACILLIN AND TAZOBACTAM [Suspect]
     Indication: ANTIBIOTIC THERAPY
     Dosage: UNK
     Dates: start: 20111228, end: 20120104
  4. VANCOMYCIN HCL [Suspect]
     Indication: ANTIBIOTIC THERAPY
     Dosage: UNK
     Dates: start: 20120105
  5. VALACYCLOVIR HYDROCHLORIDE [Suspect]
     Dosage: UNK
     Dates: start: 20111228
  6. FASTURTEC [Suspect]
     Dosage: UNK
     Dates: start: 20111228
  7. ZOFRAN [Concomitant]
  8. LEVOFLOXACIN [Suspect]
     Dosage: UNK
     Dates: start: 20111229
  9. ZYVOX [Suspect]
     Dosage: UNK
     Dates: start: 20111230
  10. AMIODARONE HCL [Suspect]
     Dosage: UNK
     Route: 042
     Dates: start: 20111230
  11. HYDREA [Suspect]
     Dosage: UNK
     Dates: start: 20111226, end: 20111228
  12. METOCLOPRAMIDE [Concomitant]
  13. EMEND [Suspect]
     Dosage: UNK
     Dates: start: 20111229
  14. POSACONAZOLE [Concomitant]

REACTIONS (3)
  - RENAL FAILURE ACUTE [None]
  - DERMATITIS BULLOUS [None]
  - APLASIA [None]
